FAERS Safety Report 21712194 (Version 1)
Quarter: 2022Q4

REPORT INFORMATION
  Report Type: Spontaneous
  Country: US (occurrence: US)
  Receive Date: 20221212
  Receipt Date: 20221212
  Transmission Date: 20230113
  Serious: No
  Sender: FDA-Public Use
  Company Number: US-ORG100016242-2022001747

PATIENT

DRUGS (2)
  1. EXPAREL [Suspect]
     Active Substance: BUPIVACAINE
     Indication: Abdominoplasty
     Dosage: NOT PROVIDED
  2. EPINEPHRINE\LIDOCAINE [Suspect]
     Active Substance: EPINEPHRINE\LIDOCAINE
     Indication: Blepharoplasty
     Dosage: 4-6 ML

REACTIONS (1)
  - Labelled drug-drug interaction medication error [Unknown]
